FAERS Safety Report 7092447-2 (Version None)
Quarter: 2010Q4

REPORT INFORMATION
  Report Type: 
  Country: None (occurrence: None)
  Receive Date: 20101108
  Receipt Date: 20101108
  Transmission Date: 20110411
  Serious: No
  Sender: FDA-Public Use
  Company Number: None

PATIENT
  Sex: Male
  Weight: 90.2658 kg

DRUGS (2)
  1. AMIFOSTINE [Suspect]
     Indication: DRY MOUTH
     Dosage: 500MG M-F SQ (6 DOSES SINCE 10/25/10)
     Route: 058
     Dates: start: 20101025
  2. AMIFOSTINE [Suspect]
     Indication: NEOPLASM MALIGNANT
     Dosage: 500MG M-F SQ (6 DOSES SINCE 10/25/10)
     Route: 058
     Dates: start: 20101025

REACTIONS (3)
  - PRURITUS [None]
  - PYREXIA [None]
  - RASH MACULAR [None]
